FAERS Safety Report 8598596-1 (Version None)
Quarter: 2012Q3

REPORT INFORMATION
  Report Type: 
  Country: None (occurrence: None)
  Receive Date: 20120803
  Receipt Date: 20120720
  Transmission Date: 20120928
  Serious: Yes (Other)
  Sender: FDA-Public Use
  Company Number: TPA2012A05017

PATIENT
  Sex: Male

DRUGS (1)
  1. PREVACID [Suspect]

REACTIONS (3)
  - NECK SURGERY [None]
  - SPINAL FUSION SURGERY [None]
  - DYSPHAGIA [None]
